FAERS Safety Report 15772944 (Version 1)
Quarter: 2018Q4

REPORT INFORMATION
  Report Type: Spontaneous
  Country: IN (occurrence: IN)
  Receive Date: 20181228
  Receipt Date: 20181228
  Transmission Date: 20190205
  Serious: Yes (Death, Other)
  Sender: FDA-Public Use
  Company Number: IN-FRESENIUS KABI-FK201813252

PATIENT
  Age: 45 Year
  Sex: Male

DRUGS (2)
  1. ETOPOSIDE (MANUFACTURER UNKNOWN) [Suspect]
     Active Substance: ETOPOSIDE
     Indication: NEUROBLASTOMA
     Dosage: ON DAYS 1-3
     Route: 065
  2. CISPLATIN (MANUFACTURER UNKNOWN) [Suspect]
     Active Substance: CISPLATIN
     Indication: NEUROBLASTOMA
     Dosage: ON DAYS 1-3
     Route: 065

REACTIONS (3)
  - Pneumomediastinum [Fatal]
  - Respiratory failure [Fatal]
  - Subcutaneous emphysema [Fatal]
